FAERS Safety Report 4290191-8 (Version None)
Quarter: 2004Q1

REPORT INFORMATION
  Report Type: 
  Country: None (occurrence: None)
  Receive Date: 20040126
  Receipt Date: 20031022
  Transmission Date: 20041129
  Serious: No
  Sender: FDA-Public Use
  Company Number: USA030537434

PATIENT
  Age: 72 Year
  Sex: Female
  Weight: 71 kg

DRUGS (10)
  1. FORTEO [Suspect]
     Indication: OPEN FRACTURE
     Dosage: 20 UG/DAY
     Dates: start: 20030515
  2. LANOXIN [Concomitant]
  3. SINGULAIR [Concomitant]
  4. HUMIBID (GUAIFENESIN) [Concomitant]
  5. CORTICOSTEROID NOS [Concomitant]
  6. DOXYCYCLINE [Concomitant]
  7. FLOVENT [Concomitant]
  8. ALBUTEROL [Concomitant]
  9. IPRATROPIUM BROMIDE [Concomitant]
  10. CALCIUM [Concomitant]

REACTIONS (9)
  - ASTHENIA [None]
  - BACK PAIN [None]
  - DIZZINESS [None]
  - HYPERTROPHY BREAST [None]
  - NAUSEA [None]
  - OVERDOSE [None]
  - PAIN IN EXTREMITY [None]
  - PALPITATIONS [None]
  - WEIGHT INCREASED [None]
